FAERS Safety Report 4884089-1 (Version None)
Quarter: 2006Q1

REPORT INFORMATION
  Report Type: 
  Country: None (occurrence: None)
  Receive Date: 20060118
  Receipt Date: 20050718
  Transmission Date: 20060701
  Serious: Yes (Hospitalization)
  Sender: FDA-Public Use
  Company Number: US-MERCK-0507USA02845

PATIENT
  Age: 57 Year
  Sex: Female
  Weight: 52 kg

DRUGS (7)
  1. VIOXX [Suspect]
     Indication: PAIN
     Route: 048
     Dates: start: 19990101, end: 20030101
  2. ESTROGENS (UNSPECIFIED) [Concomitant]
     Route: 065
  3. MECLIZINE [Concomitant]
     Route: 065
  4. [THERAPY UNSPECIFIED] [Concomitant]
     Route: 065
  5. FLEXERIL [Concomitant]
     Route: 065
  6. ALBUTEROL [Concomitant]
     Route: 065
  7. COMBIVENT [Concomitant]
     Route: 065

REACTIONS (9)
  - BLADDER DISORDER [None]
  - BRONCHITIS [None]
  - CERVICAL SPINAL STENOSIS [None]
  - CORONARY ARTERY DISEASE [None]
  - HYPERTENSION [None]
  - MYOCARDIAL INFARCTION [None]
  - SINUS DISORDER [None]
  - URTICARIA [None]
  - UTERINE DISORDER [None]
